FAERS Safety Report 14878730 (Version 3)
Quarter: 2018Q3

REPORT INFORMATION
  Report Type: Report from Study
  Country: CA (occurrence: CA)
  Receive Date: 20180511
  Receipt Date: 20180715
  Transmission Date: 20181010
  Serious: Yes (Hospitalization, Other)
  Sender: FDA-Public Use
  Company Number: CA-BIOGEN-2018BI00574652

PATIENT
  Age: 64 Year
  Sex: Male

DRUGS (1)
  1. TECFIDERA [Suspect]
     Active Substance: DIMETHYL FUMARATE
     Indication: MULTIPLE SCLEROSIS
     Dosage: REDUCED DOSE
     Route: 048
     Dates: start: 20170615, end: 20180504

REACTIONS (3)
  - Urinary tract infection [Recovered/Resolved]
  - Urosepsis [Unknown]
  - Lymphopenia [Not Recovered/Not Resolved]

NARRATIVE: CASE EVENT DATE: 201803
